FAERS Safety Report 12997087 (Version 4)
Quarter: 2020Q3

REPORT INFORMATION
  Report Type: Report from Study
  Country: KR (occurrence: KR)
  Receive Date: 20161205
  Receipt Date: 20170424
  Transmission Date: 20201105
  Serious: Yes (Hospitalization, Other)
  Sender: FDA-Public Use
  Company Number: KR-PFIZER INC-2016519365

PATIENT
  Age: 63 Month
  Sex: Male

DRUGS (34)
  1. CARBOPLATIN. [Suspect]
     Active Substance: CARBOPLATIN
     Indication: SMALL CELL LUNG CANCER
     Dosage: AUC 5 MG/ML/MIN
     Route: 042
     Dates: start: 20160729, end: 20160729
  2. TREMELIMUMAB. [Suspect]
     Active Substance: TREMELIMUMAB
     Dosage: 75 MG, EVERY 3 WEEKS
     Route: 042
     Dates: start: 20161011, end: 20161011
  3. MEDI4736 [Suspect]
     Active Substance: DURVALUMAB
     Indication: SMALL CELL LUNG CANCER
     Dosage: 1.12 G, EVERY 3 WEEKS
     Route: 042
     Dates: start: 20160729, end: 20160729
  4. MEDI4736 [Suspect]
     Active Substance: DURVALUMAB
     Dosage: 1.12 G, EVERY 3 WEEKS
     Route: 042
     Dates: start: 20160920, end: 20160920
  5. ETOPOSIDE. [Suspect]
     Active Substance: ETOPOSIDE
     Indication: SMALL CELL LUNG CANCER
     Dosage: 100 MG/M2, 1X/DAY
     Route: 042
     Dates: start: 20160729, end: 20160729
  6. ETOPOSIDE. [Suspect]
     Active Substance: ETOPOSIDE
     Dosage: 100 MG/M2, 1X/DAY
     Route: 042
     Dates: start: 20160824, end: 20160824
  7. ETOPOSIDE. [Suspect]
     Active Substance: ETOPOSIDE
     Dosage: 100 MG/M2, 1X/DAY
     Route: 042
     Dates: start: 20160920, end: 20160920
  8. ETOPOSIDE. [Suspect]
     Active Substance: ETOPOSIDE
     Dosage: 100 MG/M2, 1X/DAY
     Route: 042
     Dates: start: 20160921, end: 20160921
  9. DEXAMETHASONE. [Concomitant]
     Active Substance: DEXAMETHASONE
     Indication: PREMEDICATION
     Dosage: 4 MG, 1X/DAY
     Route: 048
     Dates: start: 20160729
  10. PENIRAMIN [Concomitant]
     Indication: PREMEDICATION
     Dosage: 2 MG, 1X/DAY
     Route: 042
     Dates: start: 20160729
  11. ETOPOSIDE. [Suspect]
     Active Substance: ETOPOSIDE
     Dosage: 100 MG/M2, EVERY 3 WEEKS
     Route: 042
     Dates: start: 20160922, end: 20160922
  12. CARBOPLATIN. [Suspect]
     Active Substance: CARBOPLATIN
     Dosage: AUC 5 MG/ML/MIN
     Route: 042
     Dates: start: 20161011, end: 20161011
  13. ETOPOSIDE. [Suspect]
     Active Substance: ETOPOSIDE
     Dosage: 100 MG/M2, EVERY 3 WEEKS
     Route: 042
     Dates: start: 20160826, end: 20160826
  14. ALOXI [Concomitant]
     Active Substance: PALONOSETRON HYDROCHLORIDE
     Indication: PREMEDICATION
     Dosage: 0.25 MG, 1X/DAY
     Route: 042
     Dates: start: 20160729
  15. TRITACE [Concomitant]
     Active Substance: RAMIPRIL
     Indication: ACUTE MYOCARDIAL INFARCTION
     Dosage: 5 MG, 1X/DAY
     Route: 048
     Dates: end: 20161031
  16. TREMELIMUMAB. [Suspect]
     Active Substance: TREMELIMUMAB
     Dosage: 75 MG, EVERY 3 WEEKS
     Route: 042
     Dates: start: 20160920, end: 20160920
  17. APETROL ES [Concomitant]
     Indication: DECREASED APPETITE
     Dosage: 5.2ML, 2X/WEEK
     Route: 048
     Dates: start: 20160729, end: 20161031
  18. ETOPOSIDE. [Suspect]
     Active Substance: ETOPOSIDE
     Dosage: 100 MG/M2, 1X/DAY
     Route: 042
     Dates: start: 20161012, end: 20161012
  19. ETOPOSIDE. [Suspect]
     Active Substance: ETOPOSIDE
     Dosage: 100 MG/M2, 1X/DAY
     Route: 042
     Dates: start: 20161013, end: 20161013
  20. MACPERAN [Concomitant]
     Active Substance: METOCLOPRAMIDE HYDROCHLORIDE
     Indication: PREMEDICATION
     Dosage: 30 MG, 1X/DAY
     Route: 042
     Dates: start: 20160729
  21. FAMOTIDINE. [Concomitant]
     Active Substance: FAMOTIDINE
     Indication: PREMEDICATION
     Dosage: 20 MG, 1X/DAY
     Route: 048
     Dates: start: 20160729
  22. CARBOPLATIN. [Suspect]
     Active Substance: CARBOPLATIN
     Dosage: AUC 5 MG/ML/MIN
     Route: 042
     Dates: start: 20160920, end: 20160920
  23. TREMELIMUMAB. [Suspect]
     Active Substance: TREMELIMUMAB
     Indication: SMALL CELL LUNG CANCER
     Dosage: 75 MG, EVERY 3 WEEKS
     Route: 042
     Dates: start: 20160729, end: 20160729
  24. MEDI4736 [Suspect]
     Active Substance: DURVALUMAB
     Dosage: 1.12 G, EVERY 3 WEEKS
     Route: 042
     Dates: start: 20160824, end: 20160824
  25. MEDI4736 [Suspect]
     Active Substance: DURVALUMAB
     Dosage: 1.12 G, EVERY 3 WEEKS
     Route: 042
     Dates: start: 20161011, end: 20161011
  26. ETOPOSIDE. [Suspect]
     Active Substance: ETOPOSIDE
     Dosage: 100 MG/M2, EVERY 3 WEEKS
     Route: 042
     Dates: start: 20160731, end: 20160731
  27. CARBOPLATIN. [Suspect]
     Active Substance: CARBOPLATIN
     Dosage: AUC 5 MG/ML/MIN
     Route: 042
     Dates: start: 20160824, end: 20160824
  28. TREMELIMUMAB. [Suspect]
     Active Substance: TREMELIMUMAB
     Dosage: 75 MG, EVERY 3 WEEKS
     Route: 042
     Dates: start: 20160824, end: 20160824
  29. ETOPOSIDE. [Suspect]
     Active Substance: ETOPOSIDE
     Dosage: 100 MG/M2, 1X/DAY
     Route: 042
     Dates: start: 20160825, end: 20160825
  30. ETOPOSIDE. [Suspect]
     Active Substance: ETOPOSIDE
     Dosage: 100 MG/M2, 1X/DAY
     Route: 042
     Dates: start: 20161011, end: 20161011
  31. CONCOR [Concomitant]
     Active Substance: BISOPROLOL FUMARATE
     Indication: ACUTE MYOCARDIAL INFARCTION
     Dosage: 2.5 MG, 1X/DAY
     Route: 048
     Dates: start: 20161027, end: 20161031
  32. ETOPOSIDE. [Suspect]
     Active Substance: ETOPOSIDE
     Dosage: 100 MG/M2, 1X/DAY
     Route: 042
     Dates: start: 20160730, end: 20160730
  33. PLAVIX [Concomitant]
     Active Substance: CLOPIDOGREL BISULFATE
     Indication: ACUTE MYOCARDIAL INFARCTION
     Dosage: 75 MG, 1X/DAY
     Route: 048
  34. CRESNON [Concomitant]
     Indication: DYSLIPIDAEMIA
     Dosage: 20 MG, 1X/DAY
     Route: 048
     Dates: end: 20161031

REACTIONS (1)
  - Autoimmune hepatitis [Recovered/Resolved]

NARRATIVE: CASE EVENT DATE: 20161101
